FAERS Safety Report 6821649-2 (Version None)
Quarter: 2010Q3

REPORT INFORMATION
  Report Type: 
  Country: None (occurrence: None)
  Receive Date: 20100707
  Receipt Date: 20100628
  Transmission Date: 20110219
  Serious: Yes (Other)
  Sender: FDA-Public Use
  Company Number: US-AMGEN-QUU402558

PATIENT
  Sex: Male

DRUGS (18)
  1. ENBREL [Suspect]
     Indication: RHEUMATOID ARTHRITIS
     Route: 058
     Dates: start: 20100326
  2. METHOTREXATE [Concomitant]
     Route: 048
     Dates: start: 20091221
  3. VALIUM [Concomitant]
  4. LIPITOR [Concomitant]
  5. ALLEGRA [Concomitant]
  6. CYMBALTA [Concomitant]
  7. FENTANYL [Concomitant]
  8. WESTCORT [Concomitant]
  9. PERCOCET [Concomitant]
  10. UNSPECIFIED MEDICATION [Concomitant]
  11. COLCHICINE [Concomitant]
  12. VITAMIN D [Concomitant]
  13. CALCIUM CARBONATE [Concomitant]
  14. FISH OIL [Concomitant]
  15. FLOMAX [Concomitant]
  16. TESTOSTERONE [Concomitant]
  17. HUMIRA [Concomitant]
     Route: 058
  18. MEDROL [Concomitant]

REACTIONS (12)
  - ANDROGEN DEFICIENCY [None]
  - DERMATITIS ACNEIFORM [None]
  - DIARRHOEA [None]
  - DRUG INEFFECTIVE [None]
  - EYE SWELLING [None]
  - HEADACHE [None]
  - HYPERHIDROSIS [None]
  - HYPERPROLACTINAEMIA [None]
  - INJECTION SITE PAIN [None]
  - OEDEMA PERIPHERAL [None]
  - RHEUMATOID ARTHRITIS [None]
  - SWELLING FACE [None]
